FAERS Safety Report 6026521-6 (Version None)
Quarter: 2009Q1

REPORT INFORMATION
  Report Type: 
  Country: None (occurrence: None)
  Receive Date: 20090102
  Receipt Date: 20081223
  Transmission Date: 20090719
  Serious: Yes (Other)
  Sender: FDA-Public Use
  Company Number: US-ELI_LILLY_AND_COMPANY-US200812005671

PATIENT
  Sex: Female

DRUGS (1)
  1. HUMULIN N [Suspect]
     Dosage: UNK, 2/D

REACTIONS (5)
  - DIABETIC NEUROPATHY [None]
  - EYE HAEMORRHAGE [None]
  - EYE PAIN [None]
  - FEAR [None]
  - NIGHT BLINDNESS [None]
